FAERS Safety Report 10681281 (Version 1)
Quarter: 2014Q4

REPORT INFORMATION
  Report Type: Spontaneous
  Country: CA (occurrence: CA)
  Receive Date: 20141230
  Receipt Date: 20141230
  Transmission Date: 20150529
  Serious: Yes (Other)
  Sender: FDA-Public Use
  Company Number: CA-ROCHE-1514168

PATIENT
  Age: 45 Year
  Sex: Female

DRUGS (8)
  1. XOLAIR [Suspect]
     Active Substance: OMALIZUMAB
     Route: 058
     Dates: start: 20131114
  2. SEEBRI [Concomitant]
     Active Substance: GLYCOPYRRONIUM
  3. XOLAIR [Suspect]
     Active Substance: OMALIZUMAB
     Indication: ASTHMA
     Route: 058
     Dates: start: 20130723
  4. ZENHALE [Concomitant]
     Active Substance: FORMOTEROL FUMARATE\MOMETASONE FUROATE
     Dosage: 2 PUFFS
     Route: 065
  5. XOLAIR [Suspect]
     Active Substance: OMALIZUMAB
     Route: 058
     Dates: start: 20140403
  6. XOLAIR [Suspect]
     Active Substance: OMALIZUMAB
     Route: 058
     Dates: start: 20141217
  7. ALVESCO [Concomitant]
     Active Substance: CICLESONIDE
     Route: 065
  8. XOLAIR [Suspect]
     Active Substance: OMALIZUMAB
     Route: 058
     Dates: start: 20140306

REACTIONS (17)
  - Wheezing [Unknown]
  - Weight increased [Unknown]
  - Generalised erythema [Unknown]
  - Asthma [Unknown]
  - Throat irritation [Unknown]
  - Forced expiratory volume decreased [Recovering/Resolving]
  - Asthenia [Unknown]
  - Respiratory disorder [Unknown]
  - Pneumonia [Recovering/Resolving]
  - Feeling abnormal [Unknown]
  - Oropharyngeal pain [Unknown]
  - Pruritus generalised [Unknown]
  - Fatigue [Unknown]
  - Headache [Recovering/Resolving]
  - Productive cough [Unknown]
  - Urticaria [Unknown]
  - Pyrexia [Unknown]

NARRATIVE: CASE EVENT DATE: 20131114
